FAERS Safety Report 14891054 (Version 1)
Quarter: 2018Q2

REPORT INFORMATION
  Report Type: Report from Study
  Country: CA (occurrence: CA)
  Receive Date: 20180514
  Receipt Date: 20180514
  Transmission Date: 20180711
  Serious: Yes (Hospitalization)
  Sender: FDA-Public Use
  Company Number: CA-IPSEN BIOPHARMACEUTICALS, INC.-2018-06708

PATIENT
  Age: 70 Year
  Sex: Male
  Weight: 69.4 kg

DRUGS (7)
  1. PANTOLOC [Concomitant]
     Active Substance: PANTOPRAZOLE SODIUM
     Route: 048
  2. ROSUVATATIN [Concomitant]
     Dosage: EACH NIGHT AT BEDTIME
     Route: 048
  3. AMITRIPTYLINE [Concomitant]
     Active Substance: AMITRIPTYLINE
     Dosage: DAILY, AS NEEDED
     Route: 048
  4. FLURAZEPAM [Concomitant]
     Active Substance: FLURAZEPAM\FLURAZEPAM HYDROCHLORIDE
     Dosage: DAILY, S NEEDED
     Route: 048
  5. SOMATULINE AUTOGEL 120MG [Suspect]
     Active Substance: LANREOTIDE ACETATE
     Indication: NEUROENDOCRINE CARCINOMA
     Dosage: 120 MG
     Route: 058
     Dates: start: 20161130
  6. FLOUXETINE [Concomitant]
     Route: 048
  7. CHAMPIX [Concomitant]
     Active Substance: VARENICLINE TARTRATE
     Route: 048

REACTIONS (1)
  - Abdominal pain [Recovering/Resolving]

NARRATIVE: CASE EVENT DATE: 20180413
